FAERS Safety Report 23322727 (Version 4)
Quarter: 2024Q1

REPORT INFORMATION
  Report Type: Spontaneous
  Country: US (occurrence: US)
  Receive Date: 20231220
  Receipt Date: 20240129
  Transmission Date: 20240410
  Serious: Yes (Other)
  Sender: FDA-Public Use
  Company Number: US-PFIZER INC-202300450642

PATIENT
  Sex: Male

DRUGS (1)
  1. ATGAM [Suspect]
     Active Substance: EQUINE THYMOCYTE IMMUNE GLOBULIN
     Indication: Immunisation
     Dosage: UNK, SINGLE
     Dates: start: 2023, end: 2023

REACTIONS (4)
  - Acute hepatic failure [Unknown]
  - Encephalopathy [Unknown]
  - Hepatic enzyme increased [Unknown]
  - International normalised ratio increased [Unknown]

NARRATIVE: CASE EVENT DATE: 20230101
